FAERS Safety Report 7367353-6 (Version None)
Quarter: 2011Q1

REPORT INFORMATION
  Report Type: 
  Country: None (occurrence: None)
  Receive Date: 20110322
  Receipt Date: 20110315
  Transmission Date: 20110831
  Serious: Yes (Other)
  Sender: FDA-Public Use
  Company Number: CN-PFIZER INC-2011057272

PATIENT

DRUGS (2)
  1. ZYVOX [Suspect]
  2. VFEND [Concomitant]

REACTIONS (1)
  - RENAL IMPAIRMENT [None]
